FAERS Safety Report 12000429 (Version 1)
Quarter: 2016Q1

REPORT INFORMATION
  Report Type: Spontaneous
  Country: US (occurrence: None)
  Receive Date: 20160203
  Receipt Date: 20160203
  Transmission Date: 20160526
  Serious: Yes (Hospitalization)
  Sender: FDA-Public Use
  Company Number: None

PATIENT
  Age: 82 Year
  Sex: Male
  Weight: 92.99 kg

DRUGS (5)
  1. RADIUM RA-223 DICHLORIDE [Suspect]
     Active Substance: RADIUM RA-223 DICHLORIDE
     Dates: start: 20160108
  2. COUMADIN [Concomitant]
     Active Substance: WARFARIN SODIUM
  3. ULTRAM [Concomitant]
     Active Substance: TRAMADOL HYDROCHLORIDE
  4. ENZALUTAMIDE [Suspect]
     Active Substance: ENZALUTAMIDE
     Indication: SUBDURAL HAEMATOMA
     Route: 048
     Dates: start: 20160108
  5. FUROSEMIDE. [Concomitant]
     Active Substance: FUROSEMIDE

REACTIONS (3)
  - Subdural haematoma [None]
  - Brain midline shift [None]
  - Confusional state [None]

NARRATIVE: CASE EVENT DATE: 20160108
